FAERS Safety Report 19083253 (Version 1)
Quarter: 2021Q2

REPORT INFORMATION
  Report Type: Spontaneous
  Country: US (occurrence: US)
  Receive Date: 20210401
  Receipt Date: 20210401
  Transmission Date: 20210717
  Serious: Yes (Hospitalization)
  Sender: FDA-Public Use
  Company Number: None

PATIENT
  Age: 50 Year
  Sex: Male
  Weight: 66.3 kg

DRUGS (3)
  1. YESCARTA [Suspect]
     Active Substance: AXICABTAGENE CILOLEUCEL
     Indication: DIFFUSE LARGE B-CELL LYMPHOMA
     Dosage: ?          OTHER FREQUENCY:ONCE;?
     Route: 042
     Dates: start: 20200817, end: 20200817
  2. FLUDARABINE [Concomitant]
     Active Substance: FLUDARABINE PHOSPHATE
     Dates: start: 20200812, end: 20200814
  3. CYCLOPHOSPHAMIDE. [Concomitant]
     Active Substance: CYCLOPHOSPHAMIDE
     Dates: start: 20200812, end: 20200814

REACTIONS (18)
  - Pneumonia [None]
  - Carotid artery stenosis [None]
  - Mesenteric cyst [None]
  - Pulmonary congestion [None]
  - Lung opacity [None]
  - Tachycardia [None]
  - Seizure [None]
  - Bacteraemia [None]
  - Cerebral infarction [None]
  - Hypoxia [None]
  - Immune-mediated encephalopathy [None]
  - Pneumoperitoneum [None]
  - Febrile neutropenia [None]
  - Cytokine release syndrome [None]
  - Neurotoxicity [None]
  - Clostridium difficile colitis [None]
  - Pleural effusion [None]
  - Fungaemia [None]

NARRATIVE: CASE EVENT DATE: 20200817
